FAERS Safety Report 5885394-2 (Version None)
Quarter: 2008Q3

REPORT INFORMATION
  Report Type: 
  Country: None (occurrence: None)
  Receive Date: 20080915
  Receipt Date: 20080915
  Transmission Date: 20090109
  Serious: Yes (Other)
  Sender: FDA-Public Use
  Company Number: None

PATIENT
  Age: 50 Year
  Sex: Female
  Weight: 86.1834 kg

DRUGS (1)
  1. LYRICA [Suspect]
     Indication: FIBROMYALGIA
     Dosage: 1-2 TABS BID PO
     Route: 048
     Dates: start: 20080501, end: 20080905

REACTIONS (3)
  - DISTURBANCE IN ATTENTION [None]
  - MANIA [None]
  - THINKING ABNORMAL [None]
